FAERS Safety Report 12186575 (Version 3)
Quarter: 2016Q2

REPORT INFORMATION
  Report Type: Spontaneous
  Country: TR (occurrence: TR)
  Receive Date: 20160317
  Receipt Date: 20160426
  Transmission Date: 20160815
  Serious: Yes (Death, Hospitalization)
  Sender: FDA-Public Use
  Company Number: TR-SUN PHARMACEUTICAL INDUSTRIES LTD-2016RR-113305

PATIENT

DRUGS (8)
  1. SEVOFLURANE. [Suspect]
     Active Substance: SEVOFLURANE
     Indication: ANAESTHESIA
     Dosage: UNK
     Route: 065
  2. TRAMADOL. [Suspect]
     Active Substance: TRAMADOL
     Indication: ANALGESIC THERAPY
     Dosage: 100 MG, UNK
     Route: 030
  3. PROPOFOL. [Suspect]
     Active Substance: PROPOFOL
     Indication: ANAESTHESIA
     Dosage: UNK
     Route: 065
  4. CARBOPLATIN. [Concomitant]
     Active Substance: CARBOPLATIN
     Indication: CHEMOTHERAPY
     Dosage: UNK
     Route: 065
  5. PARACETAMOL [Concomitant]
     Active Substance: ACETAMINOPHEN
     Indication: ANALGESIC THERAPY
     Dosage: UNK
     Route: 051
  6. FENTANYL. [Suspect]
     Active Substance: FENTANYL
     Indication: ANALGESIC THERAPY
     Dosage: 25 MCG/H
     Route: 065
  7. DOCETAXEL. [Concomitant]
     Active Substance: DOCETAXEL
     Indication: CHEMOTHERAPY
     Dosage: UNK
     Route: 065
  8. CAPECITABINE. [Concomitant]
     Active Substance: CAPECITABINE
     Indication: CHEMOTHERAPY
     Dosage: UNK
     Route: 065

REACTIONS (4)
  - Somnolence [Unknown]
  - Areflexia [Fatal]
  - Brain death [Fatal]
  - Confusional state [Unknown]
